FAERS Safety Report 13710448 (Version 1)
Quarter: 2017Q3

REPORT INFORMATION
  Report Type: Spontaneous
  Country: JP (occurrence: JP)
  Receive Date: 20170703
  Receipt Date: 20170703
  Transmission Date: 20171127
  Serious: Yes (Other)
  Sender: FDA-Public Use
  Company Number: JP-SA-2017SA118929

PATIENT
  Age: 49 Year
  Sex: Male

DRUGS (1)
  1. BCG FOR IMMUNOTHERAPY [Suspect]
     Active Substance: BACILLUS CALMETTE-GUERIN ANTIGEN, UNSPECIFIED SUBSTRAIN
     Indication: BLADDER CANCER
     Route: 043

REACTIONS (4)
  - Arthralgia [Recovering/Resolving]
  - Reiter^s syndrome [Recovering/Resolving]
  - Pyuria [Recovering/Resolving]
  - Ocular hyperaemia [Recovering/Resolving]
